FAERS Safety Report 15828696 (Version 1)
Quarter: 2019Q1

REPORT INFORMATION
  Report Type: Spontaneous
  Country: US (occurrence: US)
  Receive Date: 20190115
  Receipt Date: 20190115
  Transmission Date: 20190417
  Serious: Yes (Other)
  Sender: FDA-Public Use
  Company Number: US-REGENERON PHARMACEUTICALS, INC.-2018-18758

PATIENT

DRUGS (2)
  1. EYLEA [Suspect]
     Active Substance: AFLIBERCEPT
     Dosage: 2 MG, EVERY 3 OR 4 MONTHS, LAST DOSE
     Route: 031
     Dates: start: 20180309, end: 20180309
  2. EYLEA [Suspect]
     Active Substance: AFLIBERCEPT
     Indication: RETINAL VEIN OCCLUSION
     Dosage: 2 MG, EVERY 3 OR 4 MONTHS
     Route: 031

REACTIONS (2)
  - Injection site pain [Unknown]
  - Eye inflammation [Unknown]

NARRATIVE: CASE EVENT DATE: 20180309
